FAERS Safety Report 24269607 (Version 2)
Quarter: 2024Q3

REPORT INFORMATION
  Report Type: Report from Study
  Country: EG (occurrence: EG)
  Receive Date: 20240830
  Receipt Date: 20240903
  Transmission Date: 20241017
  Serious: Yes (Death, Hospitalization, Disabling)
  Sender: NOVARTIS
  Company Number: EG-002147023-NVSC2024EG174648

PATIENT
  Age: 69 Year
  Sex: Female
  Weight: 70 kg

DRUGS (2)
  1. ENTRESTO [Suspect]
     Active Substance: SACUBITRIL\VALSARTAN
     Indication: Cardiac failure
     Dosage: 50 MG, BID
     Route: 065
     Dates: start: 202304, end: 202312
  2. DAPAGLIFLOZIN [Suspect]
     Active Substance: DAPAGLIFLOZIN
     Indication: Product used for unknown indication
     Dosage: UNK
     Route: 048

REACTIONS (10)
  - Fatigue [Fatal]
  - Cardiovascular disorder [Fatal]
  - Pulmonary oedema [Recovering/Resolving]
  - Renal impairment [Not Recovered/Not Resolved]
  - Blood potassium decreased [Not Recovered/Not Resolved]
  - Oedema peripheral [Recovering/Resolving]
  - Blood creatinine increased [Not Recovered/Not Resolved]
  - Movement disorder [Unknown]
  - Neuritis [Unknown]
  - Ejection fraction decreased [Unknown]

NARRATIVE: CASE EVENT DATE: 20230401
